FAERS Safety Report 10563134 (Version 1)
Quarter: 2014Q4

REPORT INFORMATION
  Report Type: Spontaneous
  Country: US (occurrence: None)
  Receive Date: 20141103
  Receipt Date: 20141103
  Transmission Date: 20150529
  Serious: No
  Sender: FDA-Public Use
  Company Number: None

PATIENT
  Age: 54 Year
  Sex: Female
  Weight: 65.77 kg

DRUGS (1)
  1. LEVAQUIN [Suspect]
     Active Substance: LEVOFLOXACIN
     Indication: URINARY TRACT INFECTION
     Dosage: 1 PILL DAILY, ONCE DAILY, TTAKEN BY MOUTH
     Route: 048
     Dates: start: 20140520, end: 20140521

REACTIONS (2)
  - Neuropathy peripheral [None]
  - Anxiety [None]

NARRATIVE: CASE EVENT DATE: 20140521
